FAERS Safety Report 5279250-0 (Version None)
Quarter: 2007Q1

REPORT INFORMATION
  Report Type: 
  Country: None (occurrence: None)
  Receive Date: 20061213
  Receipt Date: 20051116
  Transmission Date: 20070707
  Serious: No
  Sender: FDA-Public Use
  Company Number: 2005UW17429

PATIENT
  Age: 38 Year
  Sex: Male
  Weight: 83.914 kg

DRUGS (7)
  1. SEROQUEL [Suspect]
     Indication: INSOMNIA
     Dosage: 50 MG DAILY PO
     Route: 048
     Dates: start: 20050824
  2. SEROQUEL [Suspect]
     Indication: NIGHTMARE
     Dosage: 50 MG DAILY PO
     Route: 048
     Dates: start: 20050824
  3. SEROQUEL [Suspect]
     Indication: POST-TRAUMATIC STRESS DISORDER
     Dosage: 50 MG DAILY PO
     Route: 048
     Dates: start: 20050824
  4. CELEXA [Concomitant]
  5. KLONOPIN [Concomitant]
  6. TOPAMAX [Concomitant]
  7. CREON [Concomitant]

REACTIONS (1)
  - SYNCOPE [None]
